FAERS Safety Report 8947356 (Version 4)
Quarter: 2020Q2

REPORT INFORMATION
  Report Type: Spontaneous
  Country: US (occurrence: US)
  Receive Date: 20121205
  Receipt Date: 20200401
  Transmission Date: 20200714
  Serious: Yes (Hospitalization, Other)
  Sender: FDA-Public Use
  Company Number: US-JNJFOC-20121113900

PATIENT
  Age: 55 Year
  Sex: Male
  Weight: 86.26 kg

DRUGS (10)
  1. PANCREATIN [Concomitant]
     Active Substance: PANCRELIPASE
     Indication: PRODUCT USED FOR UNKNOWN INDICATION
     Route: 065
  2. RISPERDAL CONSTA [Suspect]
     Active Substance: RISPERIDONE
     Route: 030
     Dates: start: 201008
  3. RISPERDAL CONSTA [Suspect]
     Active Substance: RISPERIDONE
     Route: 030
  4. RISPERDAL CONSTA [Suspect]
     Active Substance: RISPERIDONE
     Dosage: 37.5 MG ALTERNATES WITH 25 MG EVERY 2 WEEKS
     Route: 030
     Dates: start: 2007
  5. RISPERDAL CONSTA [Suspect]
     Active Substance: RISPERIDONE
     Indication: SCHIZOPHRENIA
     Route: 030
     Dates: start: 200708, end: 201008
  6. GINGER. [Concomitant]
     Active Substance: GINGER
     Indication: ENZYME ABNORMALITY
     Route: 065
  7. RISPERDAL CONSTA [Suspect]
     Active Substance: RISPERIDONE
     Dosage: 25 MG ALTERNATES WITH 37.5 MG EVERY 2 WEEKS
     Route: 030
     Dates: start: 2007
  8. RISPERDAL CONSTA [Suspect]
     Active Substance: RISPERIDONE
     Route: 030
     Dates: start: 201008
  9. COQ10 [Concomitant]
     Active Substance: UBIDECARENONE
     Indication: PRODUCT USED FOR UNKNOWN INDICATION
     Route: 048
  10. RISPERDAL CONSTA [Suspect]
     Active Substance: RISPERIDONE
     Route: 030

REACTIONS (10)
  - Nausea [Recovering/Resolving]
  - Headache [Recovering/Resolving]
  - Neuromyopathy [Unknown]
  - Tremor [Recovering/Resolving]
  - Vomiting [Recovering/Resolving]
  - Sensory disturbance [Recovering/Resolving]
  - Neurosyphilis [Recovering/Resolving]
  - Toxicity to various agents [Not Recovered/Not Resolved]
  - Ejaculation disorder [Not Recovered/Not Resolved]
  - Adverse event [Unknown]

NARRATIVE: CASE EVENT DATE: 201008
